FAERS Safety Report 6216640-3 (Version None)
Quarter: 2009Q2

REPORT INFORMATION
  Report Type: 
  Country: None (occurrence: None)
  Receive Date: 20090605
  Receipt Date: 20090529
  Transmission Date: 20091009
  Serious: Yes (Death)
  Sender: FDA-Public Use
  Company Number: EG-ROCHE-480066

PATIENT
  Age: 35 Year
  Sex: Female

DRUGS (2)
  1. TAMIFLU [Suspect]
     Indication: INFLUENZA
     Route: 065
     Dates: start: 20061221, end: 20061224
  2. AMANTADINE HCL [Concomitant]
     Dates: start: 20061220, end: 20061220

REACTIONS (1)
  - PATHOGEN RESISTANCE [None]
